FAERS Safety Report 22089030 (Version 1)
Quarter: 2023Q1

REPORT INFORMATION
  Report Type: Spontaneous
  Country: US (occurrence: None)
  Receive Date: 20230309
  Receipt Date: 20230309
  Transmission Date: 20230418
  Serious: No
  Sender: FDA-Public Use
  Company Number: None

PATIENT

DRUGS (2)
  1. MAKENA [Suspect]
     Active Substance: HYDROXYPROGESTERONE CAPROATE
  2. PROGESTERONE [Suspect]
     Active Substance: PROGESTERONE

REACTIONS (7)
  - Product prescribing error [None]
  - Product prescribing error [None]
  - Product dispensing error [None]
  - Maternal drugs affecting foetus [None]
  - Inappropriate schedule of product administration [None]
  - Maternal exposure during pregnancy [None]
  - Wrong product administered [None]

NARRATIVE: CASE EVENT DATE: 20141225
